FAERS Safety Report 7207849-0 (Version None)
Quarter: 2010Q4

REPORT INFORMATION
  Report Type: 
  Country: None (occurrence: None)
  Receive Date: 20101221
  Receipt Date: 20101206
  Transmission Date: 20110411
  Serious: Yes (Other)
  Sender: FDA-Public Use
  Company Number: 2010001292

PATIENT
  Age: 67 Year
  Sex: Male
  Weight: 42.6 kg

DRUGS (5)
  1. ERLOTINIB (ERLOTINIB) (TABLET) (ERLOTINIB) [Suspect]
     Indication: LUNG ADENOCARCINOMA
     Dosage: (150 MG, QD), ORAL
     Route: 048
     Dates: start: 20090708, end: 20091202
  2. URSO 250 [Concomitant]
  3. BIOFERMIN (BIOFERMIN) [Concomitant]
  4. FLOMAX [Concomitant]
  5. OMEPRAZOLE [Concomitant]

REACTIONS (3)
  - IMPAIRED HEALING [None]
  - PNEUMOTHORAX [None]
  - SKIN ULCER [None]
